FAERS Safety Report 15347427 (Version 1)
Quarter: 2018Q3

REPORT INFORMATION
  Report Type: Spontaneous
  Country: US (occurrence: US)
  Receive Date: 20180829
  Receipt Date: 20180829
  Transmission Date: 20181010
  Serious: Yes (Other)
  Sender: FDA-Public Use
  Company Number: None

PATIENT
  Age: 74 Year
  Sex: Male
  Weight: 85.5 kg

DRUGS (12)
  1. TAFINLAR [Suspect]
     Active Substance: DABRAFENIB MESYLATE
     Indication: MALIGNANT MELANOMA
     Route: 048
     Dates: start: 20180419, end: 20180829
  2. ASPIRIN81MG [Concomitant]
  3. FERROUS SULFATE 325 [Concomitant]
  4. VITAMIN B12 1000MCG [Concomitant]
  5. ESOMEPRAZOLE 20MG [Concomitant]
     Active Substance: ESOMEPRAZOLE
  6. ALFUZOSIN ER 10MG [Concomitant]
     Active Substance: ALFUZOSIN
  7. VITAMIN D3 2000UNIT [Concomitant]
  8. ALLOPURINOL 300MG [Concomitant]
     Active Substance: ALLOPURINOL
  9. ATORVASTATIN 20MG [Concomitant]
     Active Substance: ATORVASTATIN
  10. MEKINIST [Suspect]
     Active Substance: TRAMETINIB DIMETHYL SULFOXIDE
     Indication: MALIGNANT MELANOMA
     Route: 048
     Dates: start: 20180419, end: 20180829
  11. LOVENOX 100MG/ML [Concomitant]
  12. FINASTERIDE 5MG [Concomitant]
     Active Substance: FINASTERIDE

REACTIONS (1)
  - Disease progression [None]

NARRATIVE: CASE EVENT DATE: 20180829
